FAERS Safety Report 25837187 (Version 3)
Quarter: 2025Q4

REPORT INFORMATION
  Report Type: Report from Study
  Country: US (occurrence: US)
  Receive Date: 20250923
  Receipt Date: 20251214
  Transmission Date: 20260117
  Serious: No
  Sender: ABBVIE
  Company Number: US-ABBVIE-6469131

PATIENT
  Age: 77 Year
  Sex: Male

DRUGS (1)
  1. SKYRIZI [Suspect]
     Active Substance: RISANKIZUMAB-RZAA
     Indication: Crohn^s disease
     Route: 058
     Dates: start: 20230816

REACTIONS (2)
  - Pericarditis [Recovering/Resolving]
  - Pericardial effusion [Unknown]

NARRATIVE: CASE EVENT DATE: 20250601
